FAERS Safety Report 8559996-9 (Version None)
Quarter: 2012Q3

REPORT INFORMATION
  Report Type: 
  Country: None (occurrence: None)
  Receive Date: 20120802
  Receipt Date: 20120727
  Transmission Date: 20120928
  Serious: Yes (Death, Hospitalization)
  Sender: FDA-Public Use
  Company Number: JP-PFIZER INC-2012149046

PATIENT
  Age: 74 Year
  Sex: Male

DRUGS (1)
  1. CORTRIL [Suspect]
     Indication: ADRENAL INSUFFICIENCY
     Dosage: UNK
     Route: 048
     Dates: end: 20120620

REACTIONS (3)
  - RENAL FAILURE CHRONIC [None]
  - DEEP VEIN THROMBOSIS [None]
  - PNEUMONIA [None]
